FAERS Safety Report 17783962 (Version 1)
Quarter: 2020Q2

REPORT INFORMATION
  Report Type: Spontaneous
  Country: US (occurrence: US)
  Receive Date: 20200514
  Receipt Date: 20200514
  Transmission Date: 20200714
  Serious: Yes (Hospitalization)
  Sender: FDA-Public Use
  Company Number: None

PATIENT
  Age: 80 Year
  Sex: Male
  Weight: 75.8 kg

DRUGS (3)
  1. NEULASTA [Suspect]
     Active Substance: PEGFILGRASTIM
     Dates: end: 20200430
  2. CISPLATIN. [Suspect]
     Active Substance: CISPLATIN
     Dates: end: 20200429
  3. GEMCITABINE HYDROCHLORIDE. [Suspect]
     Active Substance: GEMCITABINE HYDROCHLORIDE
     Dates: end: 20200428

REACTIONS (3)
  - Chest discomfort [None]
  - Cardiac flutter [None]
  - Pulmonary embolism [None]

NARRATIVE: CASE EVENT DATE: 20200504
